FAERS Safety Report 16597842 (Version 1)
Quarter: 2019Q3

REPORT INFORMATION
  Report Type: Spontaneous
  Country: IT (occurrence: IT)
  Receive Date: 20190719
  Receipt Date: 20190719
  Transmission Date: 20191004
  Serious: Yes (Hospitalization, Other)
  Sender: FDA-Public Use
  Company Number: IT-PFIZER INC-2019303943

PATIENT
  Age: 82 Year
  Sex: Male

DRUGS (7)
  1. NITRODERM [Concomitant]
     Active Substance: NITROGLYCERIN
     Dosage: UNK
  2. DOXAZOSIN MESILATE [Suspect]
     Active Substance: DOXAZOSIN MESYLATE
     Dosage: 2 MG, 1X/DAY
     Route: 048
  3. AMLODIPINE BESILATE [Suspect]
     Active Substance: AMLODIPINE BESYLATE
     Dosage: 5 MG, 1X/DAY
     Route: 048
  4. ACETYLSALICYLIC ACID [Concomitant]
     Active Substance: ASPIRIN
     Dosage: 100 MG, UNK
     Route: 048
  5. DIGOXIN. [Concomitant]
     Active Substance: DIGOXIN
     Dosage: 125 UG, UNK
     Route: 048
  6. PERINDOPRIL [Suspect]
     Active Substance: PERINDOPRIL
     Dosage: 5 MG, 1X/DAY
     Route: 048
  7. PANTOPRAZOLE [Concomitant]
     Active Substance: PANTOPRAZOLE
     Dosage: 20 MG, UNK
     Route: 048

REACTIONS (3)
  - Hyperkalaemia [Recovering/Resolving]
  - Blood creatinine increased [Unknown]
  - Syncope [Recovering/Resolving]

NARRATIVE: CASE EVENT DATE: 20190504
